FAERS Safety Report 15689469 (Version 1)
Quarter: 2018Q4

REPORT INFORMATION
  Report Type: Spontaneous
  Country: US (occurrence: US)
  Receive Date: 20181121
  Receipt Date: 20181121
  Transmission Date: 20190205
  Serious: No
  Sender: FDA-Public Use
  Company Number: None

PATIENT
  Age: 74 Year
  Sex: Female
  Weight: 78.47 kg

DRUGS (1)
  1. SENSIPAR [Suspect]
     Active Substance: CINACALCET HYDROCHLORIDE
     Indication: HYPERCALCAEMIA
     Dosage: ?          QUANTITY:1 DF DOSAGE FORM;?
     Route: 048
     Dates: start: 20180906, end: 20181023

REACTIONS (7)
  - Dehydration [None]
  - Palpitations [None]
  - Fatigue [None]
  - Vision blurred [None]
  - Headache [None]
  - Somnolence [None]
  - Movement disorder [None]

NARRATIVE: CASE EVENT DATE: 20180906
